FAERS Safety Report 11135896 (Version 2)
Quarter: 2015Q2

REPORT INFORMATION
  Report Type: Spontaneous
  Country: NO (occurrence: NO)
  Receive Date: 20150526
  Receipt Date: 20150528
  Transmission Date: 20150821
  Serious: Yes (Hospitalization)
  Sender: FDA-Public Use
  Company Number: NO-PFIZER INC-2015174445

PATIENT
  Age: 72 Year
  Sex: Male

DRUGS (1)
  1. FRAGMIN [Suspect]
     Active Substance: DALTEPARIN SODIUM
     Indication: ATRIAL FIBRILLATION
     Dosage: 7500 IU, 2X/DAY
     Route: 058
     Dates: start: 201502, end: 201502

REACTIONS (4)
  - Medication error [Recovering/Resolving]
  - Subdural haemorrhage [Recovering/Resolving]
  - Back pain [Recovering/Resolving]
  - Urinary retention [Recovering/Resolving]

NARRATIVE: CASE EVENT DATE: 20150228
